FAERS Safety Report 10601313 (Version 1)
Quarter: 2014Q4

REPORT INFORMATION
  Report Type: Spontaneous
  Country: US (occurrence: None)
  Receive Date: 20141121
  Receipt Date: 20141121
  Transmission Date: 20150529
  Serious: Yes (Life-Threatening, Disabling)
  Sender: FDA-Public Use
  Company Number: None

PATIENT
  Age: 63 Year
  Sex: Female
  Weight: 56.25 kg

DRUGS (2)
  1. MUCUS RELIEF 400 MG GREENBRIER INTL, INC . [Suspect]
     Active Substance: GUAIFENESIN
     Indication: RESPIRATORY TRACT CONGESTION
     Dosage: 1 TABLET EVERY 4 HOURS 1 TAB EVERY 4 HOUR TAKEN BY MOUTH?
     Route: 048
     Dates: start: 20141119, end: 20141120
  2. MUCUS RELIEF 400 MG GREENBRIER INTL, INC . [Suspect]
     Active Substance: GUAIFENESIN
     Indication: NASOPHARYNGITIS
     Dosage: 1 TABLET EVERY 4 HOURS 1 TAB EVERY 4 HOUR TAKEN BY MOUTH?
     Route: 048
     Dates: start: 20141119, end: 20141120

REACTIONS (2)
  - Middle insomnia [None]
  - Dyspnoea [None]

NARRATIVE: CASE EVENT DATE: 20141118
